FAERS Safety Report 7003034-6 (Version None)
Quarter: 2010Q3

REPORT INFORMATION
  Report Type: 
  Country: None (occurrence: None)
  Receive Date: 20100920
  Receipt Date: 20100528
  Transmission Date: 20110219
  Serious: No
  Sender: FDA-Public Use
  Company Number: US-ASTRAZENECA-2010SE24843

PATIENT
  Age: 66 Year
  Sex: Female

DRUGS (3)
  1. SEROQUEL XR [Suspect]
     Indication: MOOD SWINGS
     Route: 048
     Dates: start: 20100501
  2. ENAFRANIL [Concomitant]
  3. AMBIEN [Concomitant]

REACTIONS (2)
  - MEMORY IMPAIRMENT [None]
  - SOMNOLENCE [None]
